FAERS Safety Report 7395489-2 (Version None)
Quarter: 2011Q2

REPORT INFORMATION
  Report Type: 
  Country: None (occurrence: None)
  Receive Date: 20110405
  Receipt Date: 20110330
  Transmission Date: 20111010
  Serious: Yes (Hospitalization)
  Sender: FDA-Public Use
  Company Number: FR-PFIZER INC-2011066039

PATIENT
  Age: 57 Year
  Sex: Male

DRUGS (12)
  1. PARACETAMOL [Suspect]
     Dosage: 1 G, 4X/DAY (AT 8AM, 2PM, 8PM AND 2AM)
     Route: 042
     Dates: start: 20101104
  2. KETAMINE [Concomitant]
     Dosage: 50 MG, UNK
     Route: 042
     Dates: start: 20101214, end: 20101215
  3. SPASFON [Concomitant]
     Dosage: 6 DF/DAY
     Route: 042
     Dates: start: 20101207
  4. ATARAX [Suspect]
     Dosage: 50 MG, 2X/DAY
     Route: 042
     Dates: start: 20101207
  5. EUPANTOL [Suspect]
     Dosage: 40 MG, 1X/DAY
     Route: 042
     Dates: start: 20101104, end: 20101214
  6. CLINOMEL [Concomitant]
     Indication: PARENTERAL NUTRITION
     Dosage: UNK
     Route: 042
     Dates: start: 20101202
  7. CONTRAMAL [Suspect]
     Dosage: 100 MG/2ML, THRICE DAILY (AT 8AM, 4PM, AND 0H)
     Route: 042
     Dates: start: 20101125
  8. LOVENOX [Concomitant]
     Dosage: 0.4 ML, 1 DF/DAY
     Route: 058
     Dates: start: 20101104
  9. MOPRAL [Suspect]
     Dosage: 40 MG, DAILY
     Route: 042
     Dates: start: 20101215, end: 20101215
  10. ZOPHREN [Suspect]
     Dosage: 1 DF, 3X/DAY
     Route: 042
     Dates: start: 20101203
  11. MORPHINE [Concomitant]
     Dosage: AS NEEDED
     Route: 042
     Dates: start: 20101104
  12. ACUPAN [Concomitant]
     Dosage: 5 VIALS DAILY
     Route: 042
     Dates: start: 20101104

REACTIONS (4)
  - VERTIGO [None]
  - MALAISE [None]
  - VISION BLURRED [None]
  - HYPERHIDROSIS [None]
